FAERS Safety Report 11465544 (Version 2)
Quarter: 2015Q3

REPORT INFORMATION
  Report Type: Report from Study
  Country: CA (occurrence: CA)
  Receive Date: 20150907
  Receipt Date: 20150914
  Transmission Date: 20151125
  Serious: Yes (Hospitalization)
  Sender: FDA-Public Use
  Company Number: CA-ABBVIE-15P-028-1434748-00

PATIENT
  Age: 63 Year
  Sex: Female
  Weight: 75.9 kg

DRUGS (5)
  1. LANTUS [Concomitant]
     Active Substance: INSULIN GLARGINE
     Indication: PRODUCT USED FOR UNKNOWN INDICATION
     Dosage: SLIDING SCALE
  2. FUROSEMIDE. [Concomitant]
     Active Substance: FUROSEMIDE
     Indication: PRODUCT USED FOR UNKNOWN INDICATION
  3. MODERIBA [Suspect]
     Active Substance: RIBAVIRIN
     Indication: HEPATITIS C
     Dosage: AM DOSE:  600 MG; PM DOSE: 600 MG.
     Route: 048
     Dates: start: 20150709
  4. NOVO-SPIROTON [Concomitant]
     Indication: PRODUCT USED FOR UNKNOWN INDICATION
     Dosage: 1/2 TAB IN AM AND 1/5 TAB IN PM
  5. HOLKIRA PAK [Suspect]
     Active Substance: DASABUVIR\OMBITASVIR\PARITAPREVIR\RITONAVIR
     Indication: HEPATITIS C
     Route: 048
     Dates: start: 20150709

REACTIONS (18)
  - Confusional state [Recovering/Resolving]
  - Ammonia decreased [Not Recovered/Not Resolved]
  - Tremor [Not Recovered/Not Resolved]
  - Blood bilirubin increased [Unknown]
  - Platelet count decreased [Unknown]
  - Blood glucose increased [Unknown]
  - Hyperglycaemia [Recovered/Resolved]
  - Blood glucose abnormal [Unknown]
  - Dyskinesia [Recovered/Resolved]
  - Dyspnoea [Recovered/Resolved]
  - Oxygen saturation decreased [Recovered/Resolved]
  - Ammonia increased [Recovering/Resolving]
  - Pain [Recovered/Resolved]
  - Asthenia [Recovered/Resolved]
  - Hyponatraemia [Recovering/Resolving]
  - Blood magnesium decreased [Unknown]
  - Asterixis [Not Recovered/Not Resolved]
  - Encephalopathy [Recovering/Resolving]

NARRATIVE: CASE EVENT DATE: 20150718
